FAERS Safety Report 9197327 (Version 2)
Quarter: 2013Q4

REPORT INFORMATION
  Report Type: Spontaneous
  Country: US (occurrence: US)
  Receive Date: 20130328
  Receipt Date: 20131127
  Transmission Date: 20140711
  Serious: Yes (Other)
  Sender: FDA-Public Use
  Company Number: US-BAYER-2013-039052

PATIENT
  Age: 23 Year
  Sex: Female

DRUGS (5)
  1. YAZ [Suspect]
  2. YASMIN [Suspect]
  3. OCELLA [Suspect]
  4. TRAMADOL [Concomitant]
  5. ZOLOFT [Concomitant]
     Dosage: 100 MG, DAILY

REACTIONS (6)
  - Gallbladder injury [None]
  - Cholecystitis [None]
  - Biliary dyskinesia [None]
  - Pain [None]
  - Injury [None]
  - Pain [None]
